FAERS Safety Report 23926103 (Version 1)
Quarter: 2024Q2

REPORT INFORMATION
  Report Type: Spontaneous
  Country: NL (occurrence: None)
  Receive Date: 20240531
  Receipt Date: 20240531
  Transmission Date: 20240715
  Serious: Yes (Life-Threatening, Other)
  Sender: FDA-Public Use
  Company Number: 2024A123836

PATIENT
  Age: 68 Year
  Sex: Male
  Weight: 85 kg

DRUGS (6)
  1. TICAGRELOR [Suspect]
     Active Substance: TICAGRELOR
     Indication: Myocarditis
     Dosage: 1 TABLET 2X DAILY
     Dates: start: 20230824, end: 20240514
  2. ENALAPRIL [Concomitant]
     Active Substance: ENALAPRIL
     Dosage: TABLET, 20 MG (MILLIGRAM)
  3. METHADONE [Concomitant]
     Active Substance: METHADONE HYDROCHLORIDE
     Dosage: 100 MG DIVIDED OVER THE DAY IN TABLET FORM 5 MG.
  4. FAMOTIDINE [Concomitant]
     Active Substance: FAMOTIDINE
     Dosage: TABLET, 40 MG (MILLIGRAM)
  5. NIFEDIPINE [Concomitant]
     Active Substance: NIFEDIPINE
     Dosage: TABLET, 10 MG (MILLIGRAM)
  6. ASPIRIN [Concomitant]
     Active Substance: ASPIRIN
     Dosage: TABLET, 80 MG (MILLIGRAM)

REACTIONS (2)
  - Anxiety disorder [Recovering/Resolving]
  - Fatigue [Recovering/Resolving]
